FAERS Safety Report 4829966-2 (Version None)
Quarter: 2005Q4

REPORT INFORMATION
  Report Type: 
  Country: None (occurrence: None)
  Receive Date: 20051117
  Receipt Date: 20051109
  Transmission Date: 20060501
  Serious: Yes (Disabling)
  Sender: FDA-Public Use
  Company Number: JP-BRISTOL-MYERS SQUIBB COMPANY-13177209

PATIENT
  Age: 74 Year
  Sex: Female

DRUGS (6)
  1. TAXOL [Suspect]
     Indication: GASTRIC CANCER
     Route: 041
     Dates: start: 20050922, end: 20051103
  2. TS-1 [Concomitant]
     Indication: GASTRIC CANCER
     Route: 048
     Dates: start: 20050922, end: 20051109
  3. DECADRON [Concomitant]
     Route: 041
     Dates: start: 20050922, end: 20051103
  4. RESTAMIN [Concomitant]
     Route: 048
     Dates: start: 20050922, end: 20051103
  5. NAVOBAN [Concomitant]
     Route: 048
     Dates: start: 20050922, end: 20051103
  6. GASTER [Concomitant]
     Route: 041
     Dates: start: 20050922, end: 20051103

REACTIONS (1)
  - CEREBRAL INFARCTION [None]
